FAERS Safety Report 9317517 (Version 1)
Quarter: 2013Q2

REPORT INFORMATION
  Report Type: Spontaneous
  Country: US (occurrence: US)
  Receive Date: 20130530
  Receipt Date: 20130530
  Transmission Date: 20140414
  Serious: No
  Sender: FDA-Public Use
  Company Number: US-NOVEN-12US004945

PATIENT
  Sex: Male
  Weight: 52.15 kg

DRUGS (1)
  1. DAYTRANA [Suspect]
     Indication: ATTENTION DEFICIT/HYPERACTIVITY DISORDER
     Dosage: 10 MBQ, QD
     Route: 062
     Dates: start: 201201, end: 201206

REACTIONS (3)
  - Disturbance in attention [Unknown]
  - Depressed mood [Unknown]
  - Drug ineffective [Unknown]
